FAERS Safety Report 6566274-6 (Version None)
Quarter: 2010Q1

REPORT INFORMATION
  Report Type: 
  Country: None (occurrence: None)
  Receive Date: 20100127
  Receipt Date: 20091221
  Transmission Date: 20100710
  Serious: No
  Sender: FDA-Public Use
  Company Number: 20108007

PATIENT
  Sex: Female

DRUGS (2)
  1. LIORESAL [Suspect]
     Indication: MUSCLE SPASTICITY
     Dosage: 288 ^MGM^, DAILY, INTRATHECAL
     Route: 037
  2. HYDROMORPHONE HYDROCHLORIDE [Concomitant]

REACTIONS (8)
  - ABDOMINAL PAIN UPPER [None]
  - COGNITIVE DISORDER [None]
  - CONSTIPATION [None]
  - DEVICE FAILURE [None]
  - IATROGENIC INJURY [None]
  - MASS [None]
  - OVERDOSE [None]
  - SOMNOLENCE [None]
